FAERS Safety Report 7583290-6 (Version None)
Quarter: 2011Q2

REPORT INFORMATION
  Report Type: 
  Country: None (occurrence: None)
  Receive Date: 20110627
  Receipt Date: 20110627
  Transmission Date: 20111010
  Serious: No
  Sender: FDA-Public Use
  Company Number: None

PATIENT
  Sex: Male
  Weight: 107.0489 kg

DRUGS (1)
  1. ACTEMRA [Suspect]
     Indication: RHEUMATOID ARTHRITIS
     Dosage: 4MG/KG DOSE ONCE IV DRIP
     Route: 041
     Dates: start: 20110510, end: 20110520

REACTIONS (5)
  - INFUSION RELATED REACTION [None]
  - DIZZINESS [None]
  - SYNCOPE [None]
  - LOSS OF CONSCIOUSNESS [None]
  - BLOOD PRESSURE INCREASED [None]
